FAERS Safety Report 5229868-6 (Version None)
Quarter: 2007Q1

REPORT INFORMATION
  Report Type: 
  Country: None (occurrence: None)
  Receive Date: 20070206
  Receipt Date: 20061114
  Transmission Date: 20070707
  Serious: No
  Sender: FDA-Public Use
  Company Number: US-GLAXOSMITHKLINE-A0627489A

PATIENT
  Age: 28 Year
  Sex: Female

DRUGS (3)
  1. PAXIL [Suspect]
     Indication: POSTURAL ORTHOSTATIC TACHYCARDIA SYNDROME
     Dosage: 20MG PER DAY
     Route: 048
     Dates: start: 20060101
  2. WELLBUTRIN [Suspect]
     Indication: POSTURAL ORTHOSTATIC TACHYCARDIA SYNDROME
     Dosage: 75MG TWICE PER DAY
     Route: 048
     Dates: start: 20060801
  3. NO CONCURRENT MEDICATION [Concomitant]

REACTIONS (2)
  - TREMOR [None]
  - URTICARIA [None]
